FAERS Safety Report 5502282-1 (Version None)
Quarter: 2007Q4

REPORT INFORMATION
  Report Type: 
  Country: None (occurrence: None)
  Receive Date: 20071030
  Receipt Date: 20071016
  Transmission Date: 20080405
  Serious: Yes (Life-Threatening, Hospitalization)
  Sender: FDA-Public Use
  Company Number: NO-RANBAXY-2005RR-01041

PATIENT
  Age: 29 Year
  Sex: Female

DRUGS (2)
  1. SOTALOL HYDROCHLORIDE [Suspect]
     Dosage: 4.8 G, SINGLE
     Route: 048
  2. VERAPAMIL [Suspect]
     Dosage: 3.6 G, SINGLE
     Route: 048

REACTIONS (10)
  - CARDIAC ARREST [None]
  - COMA [None]
  - COMPARTMENT SYNDROME [None]
  - HAEMODIALYSIS [None]
  - INTENTIONAL OVERDOSE [None]
  - INTESTINAL HAEMORRHAGE [None]
  - METABOLIC ACIDOSIS [None]
  - PARALYSIS [None]
  - RENAL FAILURE [None]
  - RHABDOMYOLYSIS [None]
